FAERS Safety Report 19963701 (Version 1)
Quarter: 2021Q4

REPORT INFORMATION
  Report Type: Spontaneous
  Country: US (occurrence: US)
  Receive Date: 20211018
  Receipt Date: 20211018
  Transmission Date: 20220303
  Serious: Yes (unspecified)
  Sender: FDA-Public Use
  Company Number: None

PATIENT
  Age: 32 Year
  Sex: Female
  Weight: 75.9 kg

DRUGS (3)
  1. OCRELIZUMAB [Suspect]
     Active Substance: OCRELIZUMAB
     Indication: Multiple sclerosis
     Dosage: ?          OTHER FREQUENCY:ONE TIME INFUSION;
     Route: 041
     Dates: start: 20211016, end: 20211016
  2. Hydrocortisone 100 mg IVP [Concomitant]
     Dates: start: 20211016, end: 20211016
  3. Diphenhydramine 25 mg IVP [Concomitant]
     Dates: start: 20211016, end: 20211016

REACTIONS (2)
  - Throat irritation [None]
  - Infusion related reaction [None]

NARRATIVE: CASE EVENT DATE: 20211016
